FAERS Safety Report 23501428 (Version 2)
Quarter: 2024Q1

REPORT INFORMATION
  Report Type: Spontaneous
  Country: US (occurrence: None)
  Receive Date: 20240208
  Receipt Date: 20240215
  Transmission Date: 20240409
  Serious: No
  Sender: FDA-Public Use
  Company Number: 2024A033265

PATIENT
  Sex: Female

DRUGS (24)
  1. QUETIAPINE [Suspect]
     Active Substance: QUETIAPINE
  2. LISINOPRIL [Suspect]
     Active Substance: LISINOPRIL
  3. OLANZAPINE [Suspect]
     Active Substance: OLANZAPINE
     Indication: Product used for unknown indication
  4. CLONAZEPAM [Suspect]
     Active Substance: CLONAZEPAM
  5. PROZAC [Suspect]
     Active Substance: FLUOXETINE HYDROCHLORIDE
     Indication: Product used for unknown indication
  6. ACETAMINOPHEN [Suspect]
     Active Substance: ACETAMINOPHEN
  7. SUCCINYLCHOLINE [Suspect]
     Active Substance: SUCCINYLCHOLINE
  8. CARBAMAZEPINE [Suspect]
     Active Substance: CARBAMAZEPINE
  9. DEXAMETHASONE\DEXCHLORPHENIRAMINE [Suspect]
     Active Substance: DEXAMETHASONE\DEXCHLORPHENIRAMINE
  10. HALOPERIDOL [Suspect]
     Active Substance: HALOPERIDOL
  11. JARDIANCE [Suspect]
     Active Substance: EMPAGLIFLOZIN
  12. LURASIDONE [Suspect]
     Active Substance: LURASIDONE
  13. PAXIL [Suspect]
     Active Substance: PAROXETINE HYDROCHLORIDE
  14. RISPERIDONE [Suspect]
     Active Substance: RISPERIDONE
  15. SULFAMETHOXAZOLE [Suspect]
     Active Substance: SULFAMETHOXAZOLE
  16. ZIPRASIDONE [Suspect]
     Active Substance: ZIPRASIDONE
  17. SEVOFLURANE [Suspect]
     Active Substance: SEVOFLURANE
  18. CARIPRAZINE [Suspect]
     Active Substance: CARIPRAZINE
  19. DEPAKOTE [Suspect]
     Active Substance: DIVALPROEX SODIUM
  20. ROSUVASTATIN [Concomitant]
     Active Substance: ROSUVASTATIN
  21. REMERON [Concomitant]
     Active Substance: MIRTAZAPINE
  22. DIOVAN [Concomitant]
     Active Substance: VALSARTAN
  23. AMLODIPINE [Concomitant]
     Active Substance: AMLODIPINE BESYLATE
  24. HUMALOG [Concomitant]
     Active Substance: INSULIN LISPRO
     Indication: Product used for unknown indication
     Dosage: 30 UNITES SUBCUTANEOUSLY THREE TIMES BEFORE EACH MEAL

REACTIONS (1)
  - Multiple drug hypersensitivity [Unknown]
